FAERS Safety Report 18415063 (Version 1)
Quarter: 2020Q4

REPORT INFORMATION
  Report Type: Spontaneous
  Country: US (occurrence: US)
  Receive Date: 20201021
  Receipt Date: 20201021
  Transmission Date: 20210114
  Serious: Yes (Other)
  Sender: FDA-Public Use
  Company Number: None

PATIENT
  Age: 61 Year
  Sex: Female
  Weight: 52.16 kg

DRUGS (4)
  1. PROGESTERONE. [Concomitant]
     Active Substance: PROGESTERONE
  2. NATURE-THROID [Suspect]
     Active Substance: THYROID, PORCINE
     Indication: HYPOTHYROIDISM
     Dosage: ?          QUANTITY:1 DF DOSAGE FORM;?
     Route: 048
     Dates: start: 20170722
  3. VITAMIN D3 [Concomitant]
     Active Substance: CHOLECALCIFEROL
  4. BAYER ASPIRIN [Concomitant]
     Active Substance: ASPIRIN

REACTIONS (8)
  - Stress [None]
  - Insomnia [None]
  - Fatigue [None]
  - Constipation [None]
  - Alopecia [None]
  - Throat irritation [None]
  - Anxiety [None]
  - Feeling cold [None]

NARRATIVE: CASE EVENT DATE: 20200825
